FAERS Safety Report 23195386 (Version 1)
Quarter: 2023Q4

REPORT INFORMATION
  Report Type: Spontaneous
  Country: NL (occurrence: NL)
  Receive Date: 20231117
  Receipt Date: 20231117
  Transmission Date: 20240110
  Serious: Yes (Hospitalization)
  Sender: FDA-Public Use
  Company Number: None

PATIENT
  Age: 80 Year
  Sex: Male
  Weight: 98 kg

DRUGS (2)
  1. OXYCODONE [Suspect]
     Active Substance: OXYCODONE
     Indication: Pain
     Dosage: 2X PER DAY 10 MG LONG-ACTING, 4X PER DAY 5 MG IF NECESSARY; OXYCODON TABLET MGA  10MG / BRAND NAME N
     Dates: start: 20231001
  2. NAPROXEN [Suspect]
     Active Substance: NAPROXEN
     Indication: Pain
     Dosage: 750 MILLIGRAM DAILY; 1 PIECE 3 TIMES A DAY; NAPROXEN TABLET MSR 250MG / BRAND NAME NOT SPECIFIED
     Dates: start: 20231001, end: 20231008

REACTIONS (1)
  - Diverticulitis [Recovering/Resolving]
